FAERS Safety Report 9706774 (Version 1)
Quarter: 2013Q4

REPORT INFORMATION
  Report Type: Spontaneous
  Country: US (occurrence: None)
  Receive Date: 20131122
  Receipt Date: 20131122
  Transmission Date: 20140711
  Serious: Yes (Death)
  Sender: FDA-Public Use
  Company Number: None

PATIENT
  Age: 61 Year
  Sex: Male
  Weight: 110 kg

DRUGS (20)
  1. PONATINIB [Suspect]
     Indication: ACUTE LYMPHOCYTIC LEUKAEMIA
     Route: 048
     Dates: start: 20130717, end: 20131015
  2. BUTALBITAL+APAP+CAFFEINE (FIORICET) [Concomitant]
  3. OXYCODONE CONTROLLED RELEASE (OXYCONTIN) [Concomitant]
  4. GABAPENTIN (NEURONTIN) [Concomitant]
  5. ACETAMINOPHEN [Concomitant]
  6. GABAPENTIN (NEURONTIN) [Concomitant]
  7. OXYCODONE [Concomitant]
  8. VINCRISTINE SULFATE [Concomitant]
  9. NYSTATIN SUSPENSION [Concomitant]
  10. TRIMETHOPRIM [Concomitant]
  11. FAMCICLOVIR [Concomitant]
  12. CIPROFLOXACIN [Concomitant]
  13. VORICONAZOLE [Concomitant]
  14. METOPROLOL TARTRATE [Concomitant]
  15. DIGOXIN [Concomitant]
  16. FILGRASTIM [Concomitant]
  17. DEXAMETHASONE [Concomitant]
  18. PREDNISONE [Concomitant]
  19. DIPHENHYDRAMINE ORAL [Concomitant]
  20. PROCHLORPERAZINE MALEATE [Concomitant]

REACTIONS (6)
  - Unresponsive to stimuli [None]
  - Hypopnoea [None]
  - Pulse absent [None]
  - Thrombocytopenia [None]
  - Cerebral infarction [None]
  - Cardio-respiratory arrest [None]
